FAERS Safety Report 21955672 (Version 2)
Quarter: 2023Q1

REPORT INFORMATION
  Report Type: Other
  Country: FR (occurrence: FR)
  Receive Date: 20230206
  Receipt Date: 20230208
  Transmission Date: 20230418
  Serious: Yes (Life-Threatening, Other)
  Sender: FDA-Public Use
  Company Number: None

PATIENT
  Age: 60 Year
  Sex: Male
  Weight: 64 kg

DRUGS (3)
  1. TACROLIMUS [Interacting]
     Active Substance: TACROLIMUS
     Indication: Prophylaxis against transplant rejection
     Dosage: 4 MG, ONCE DAILY (TOTAL DOSE)
     Route: 048
     Dates: start: 20230101, end: 20230101
  2. TACROLIMUS [Interacting]
     Active Substance: TACROLIMUS
     Dosage: 10 MG, ONCE DAILY (TOTAL DOSE)
     Route: 048
     Dates: start: 20230102, end: 20230102
  3. PAXLOVID [Interacting]
     Active Substance: NIRMATRELVIR\RITONAVIR
     Indication: COVID-19
     Dosage: 2 DF, TOTAL DOSE (PAXLOVID 150 MG + 100 MG)
     Route: 048
     Dates: start: 20221230, end: 20221230

REACTIONS (4)
  - Acute pulmonary oedema [Recovering/Resolving]
  - Product prescribing issue [Recovering/Resolving]
  - Accidental overdose [Recovering/Resolving]
  - Drug interaction [Unknown]

NARRATIVE: CASE EVENT DATE: 20230102
